FAERS Safety Report 11846667 (Version 1)
Quarter: 2015Q4

REPORT INFORMATION
  Report Type: Spontaneous
  Country: US (occurrence: US)
  Receive Date: 20151217
  Receipt Date: 20151217
  Transmission Date: 20160305
  Serious: No
  Sender: FDA-Public Use
  Company Number: US-ROCHE-1507131

PATIENT
  Age: 15 Year
  Sex: Male

DRUGS (2)
  1. AMOXICILLIN. [Concomitant]
     Active Substance: AMOXICILLIN
     Indication: EAR INFECTION
  2. TAMIFLU [Suspect]
     Active Substance: OSELTAMIVIR PHOSPHATE
     Indication: INFLUENZA
     Dosage: FOR 5 DAYS
     Route: 065
     Dates: start: 20141208, end: 20141209

REACTIONS (10)
  - Hallucination [Recovered/Resolved]
  - Hyperhidrosis [Recovered/Resolved]
  - Confusional state [Recovered/Resolved]
  - Headache [Not Recovered/Not Resolved]
  - Anxiety [Recovered/Resolved]
  - Mood swings [Recovered/Resolved]
  - Aggression [Recovered/Resolved]
  - Pulmonary congestion [Not Recovered/Not Resolved]
  - Disorientation [Recovered/Resolved]
  - Cough [Not Recovered/Not Resolved]

NARRATIVE: CASE EVENT DATE: 20141209
